FAERS Safety Report 13629356 (Version 1)
Quarter: 2017Q2

REPORT INFORMATION
  Report Type: Spontaneous
  Country: PL (occurrence: PL)
  Receive Date: 20170608
  Receipt Date: 20170608
  Transmission Date: 20170830
  Serious: Yes (Death, Hospitalization, Other)
  Sender: FDA-Public Use
  Company Number: PL-TEVA-775397ROM

PATIENT
  Age: 45 Year
  Sex: Male

DRUGS (1)
  1. CICLOSPORIN [Suspect]
     Active Substance: CYCLOSPORINE
     Route: 065

REACTIONS (7)
  - Fungal infection [Unknown]
  - Candida infection [Unknown]
  - Thrombotic thrombocytopenic purpura [Unknown]
  - Acute kidney injury [Unknown]
  - Septic shock [Unknown]
  - Fungal endocarditis [Fatal]
  - Aspergillus infection [Fatal]
